FAERS Safety Report 9678626 (Version 2)
Quarter: 2013Q4

REPORT INFORMATION
  Report Type: Spontaneous
  Country: NZ (occurrence: NZ)
  Receive Date: 20131108
  Receipt Date: 20131202
  Transmission Date: 20140711
  Serious: Yes (Hospitalization, Disabling)
  Sender: FDA-Public Use
  Company Number: NZ-B.I. PHARMACEUTICALS,INC./RIDGEFIELD-2013-BI-35275AU

PATIENT
  Age: 71 Year
  Sex: Male
  Weight: 89 kg

DRUGS (3)
  1. PRADAXA [Suspect]
     Indication: ATRIAL FIBRILLATION
     Dosage: 300 MG
  2. METOPROLOL CR [Concomitant]
  3. QUINAPRIL [Concomitant]

REACTIONS (1)
  - Ischaemic stroke [Recovered/Resolved with Sequelae]
